FAERS Safety Report 24065886 (Version 1)
Quarter: 2024Q3

REPORT INFORMATION
  Report Type: Spontaneous
  Country: US (occurrence: None)
  Receive Date: 20240709
  Receipt Date: 20240709
  Transmission Date: 20241017
  Serious: Yes (Death)
  Sender: Public
  Company Number: None

PATIENT
  Sex: Female

DRUGS (3)
  1. AMBRISENTAN [Suspect]
     Active Substance: AMBRISENTAN
     Indication: Pulmonary hypertension
  2. LETAIRIS [Concomitant]
     Active Substance: AMBRISENTAN
  3. TADALAFIL [Concomitant]
     Active Substance: TADALAFIL

REACTIONS (1)
  - Death [None]
